FAERS Safety Report 4673538-X (Version None)
Quarter: 2005Q2

REPORT INFORMATION
  Report Type: 
  Country: None (occurrence: None)
  Receive Date: 20050525
  Receipt Date: 20050113
  Transmission Date: 20051028
  Serious: Yes (Other)
  Sender: FDA-Public Use
  Company Number: PHEH2005US00915

PATIENT
  Age: 78 Year
  Sex: 0

DRUGS (6)
  1. ZOMETA [Suspect]
     Dosage: 4 MG, QMO
     Route: 042
     Dates: start: 20020422, end: 20041228
  2. DEXAMETHASONE [Concomitant]
     Indication: MULTIPLE MYELOMA
     Dosage: 40 MG, UNK
     Dates: start: 20030601, end: 20030101
  3. DEXAMETHASONE [Concomitant]
     Dosage: 40 MG, UNK
     Dates: start: 20041101, end: 20041101
  4. THALIDOMIDE [Concomitant]
     Indication: MULTIPLE MYELOMA
     Dosage: 100 MG, UNK
     Dates: start: 20030601, end: 20040401
  5. THALIDOMIDE [Concomitant]
     Dosage: 50 MG, UNK
     Dates: start: 20040113
  6. CYTOXAN [Concomitant]
     Indication: MULTIPLE MYELOMA
     Dosage: 50 MG, UNK
     Dates: start: 20041101, end: 20041101

REACTIONS (4)
  - IMPAIRED HEALING [None]
  - OSTEONECROSIS [None]
  - TOOTH EXTRACTION [None]
  - WOUND DEBRIDEMENT [None]
